FAERS Safety Report 7218520-3 (Version None)
Quarter: 2011Q1

REPORT INFORMATION
  Report Type: 
  Country: None (occurrence: None)
  Receive Date: 20110110
  Receipt Date: 20101231
  Transmission Date: 20110831
  Serious: Yes (Death)
  Sender: FDA-Public Use
  Company Number: US-JNJFOC-20110101619

PATIENT
  Age: 51 Year
  Sex: Male

DRUGS (4)
  1. SALICYLIC ACID [Suspect]
     Indication: SUICIDE ATTEMPT
     Route: 048
  2. UNKNOWN MEDICATION [Suspect]
     Indication: SUICIDE ATTEMPT
     Route: 048
  3. IBUPROFEN [Suspect]
     Indication: SUICIDE ATTEMPT
     Route: 048
  4. ALL OTHER NON-THERAPEUTIC [Suspect]
     Indication: SUICIDE ATTEMPT
     Route: 048

REACTIONS (2)
  - COMPLETED SUICIDE [None]
  - TOXICITY TO VARIOUS AGENTS [None]
